FAERS Safety Report 7879183-7 (Version None)
Quarter: 2011Q4

REPORT INFORMATION
  Report Type: 
  Country: None (occurrence: None)
  Receive Date: 20111101
  Receipt Date: 20111024
  Transmission Date: 20120403
  Serious: Yes (Hospitalization, Other)
  Sender: FDA-Public Use
  Company Number: US-BAYER-201036346NA

PATIENT
  Age: 30 Year
  Sex: Female
  Weight: 72 kg

DRUGS (14)
  1. WELLBUTRIN [Concomitant]
  2. LAMICTAL [Concomitant]
  3. CELEXA [Concomitant]
  4. ALBUTEROL INHALER [Concomitant]
  5. ALLEGRA-D 12 HOUR [Concomitant]
  6. XANAX [Concomitant]
  7. ANTACIDS [Concomitant]
  8. KLONOPIN [Concomitant]
  9. IBUPROFEN (ADVIL) [Concomitant]
  10. YAZ [Suspect]
     Dosage: UNK
     Dates: start: 20060601, end: 20060101
  11. YASMIN [Suspect]
     Indication: PRODUCT USED FOR UNKNOWN INDICATION
     Route: 048
     Dates: start: 20050701, end: 20090501
  12. NEXIUM [Concomitant]
  13. BACTRIM [Concomitant]
     Indication: URINARY TRACT INFECTION
  14. INDOMETHACIN [Concomitant]
     Indication: URINARY TRACT INFECTION

REACTIONS (3)
  - GALLBLADDER DISORDER [None]
  - PAIN [None]
  - CHOLECYSTITIS CHRONIC [None]
